FAERS Safety Report 6569144-2 (Version None)
Quarter: 2010Q1

REPORT INFORMATION
  Report Type: 
  Country: None (occurrence: None)
  Receive Date: 20100201
  Receipt Date: 20100201
  Transmission Date: 20100710
  Serious: Yes (Hospitalization)
  Sender: FDA-Public Use
  Company Number: None

PATIENT
  Age: 76 Year
  Sex: Male

DRUGS (3)
  1. BUMETANIDE [Suspect]
     Indication: HYPERTENSION
     Dosage: 2 MG BID PO
     Route: 048
     Dates: start: 20090924, end: 20100109
  2. BUMETANIDE [Suspect]
     Indication: OEDEMA
     Dosage: 2 MG BID PO
     Route: 048
     Dates: start: 20090924, end: 20100109
  3. METHIMAZOLE [Suspect]
     Indication: OEDEMA
     Dosage: 10 MG EVERY DAY PO
     Route: 048
     Dates: start: 20091015, end: 20100110

REACTIONS (2)
  - METABOLIC ALKALOSIS [None]
  - RESPIRATORY ALKALOSIS [None]
